FAERS Safety Report 16824594 (Version 1)
Quarter: 2019Q3

REPORT INFORMATION
  Report Type: Spontaneous
  Country: US (occurrence: US)
  Receive Date: 20190918
  Receipt Date: 20190918
  Transmission Date: 20191005
  Serious: Yes (Other)
  Sender: FDA-Public Use
  Company Number: US-009507513-1909USA005738

PATIENT
  Age: 73 Year
  Sex: Male

DRUGS (10)
  1. NOXAFIL [Suspect]
     Active Substance: POSACONAZOLE
     Dosage: 200 MILLIGRAM, DAILY
     Route: 048
  2. FILGRASTIM [Concomitant]
     Active Substance: FILGRASTIM
  3. MICAFUNGIN. [Concomitant]
     Active Substance: MICAFUNGIN SODIUM
     Indication: MUCORMYCOSIS
     Dosage: UNK
  4. DEXAMETHASONE. [Concomitant]
     Active Substance: DEXAMETHASONE
     Indication: PLASMA CELL MYELOMA
  5. AMPHOTERICIN B (+) CHOLESTEROL (+) DISTEAROYLPHOSPHATIDYLGLYCEROL (+) [Concomitant]
     Active Substance: AMPHOTERICIN B\CHOLESTEROL
     Indication: MUCORMYCOSIS
     Dosage: UNK
  6. NOXAFIL [Suspect]
     Active Substance: POSACONAZOLE
     Dosage: 100 MILLIGRAM, DAILY
     Route: 048
  7. OXYCODONE [Concomitant]
     Active Substance: OXYCODONE
  8. NOXAFIL [Suspect]
     Active Substance: POSACONAZOLE
     Indication: MUCORMYCOSIS
     Dosage: 300 MILLIGRAM, DAILY
     Route: 048
  9. SITAGLIPTIN [Concomitant]
     Active Substance: SITAGLIPTIN
  10. PANTOPRAZOLE [Concomitant]
     Active Substance: PANTOPRAZOLE

REACTIONS (4)
  - Acquired apparent mineralocorticoid excess [Unknown]
  - Product use in unapproved indication [Unknown]
  - Hypertension [Recovered/Resolved]
  - Hypokalaemia [Recovered/Resolved]
